FAERS Safety Report 7287766-0 (Version None)
Quarter: 2011Q1

REPORT INFORMATION
  Report Type: 
  Country: None (occurrence: None)
  Receive Date: 20110207
  Receipt Date: 20110207
  Transmission Date: 20110831
  Serious: No
  Sender: FDA-Public Use
  Company Number: None

PATIENT
  Age: 54 Year
  Sex: Female
  Weight: 57.6068 kg

DRUGS (1)
  1. MALARONE [Suspect]
     Indication: MALARIA PROPHYLAXIS
     Dosage: 1 PER DAY WITH FOOD SAME TIME OF DAY PO
     Route: 048
     Dates: start: 20110115, end: 20110123

REACTIONS (3)
  - HEART RATE INCREASED [None]
  - LOSS OF CONSCIOUSNESS [None]
  - VOMITING [None]
